FAERS Safety Report 9785697 (Version 3)
Quarter: 2014Q4

REPORT INFORMATION
  Report Type: Spontaneous
  Country: US (occurrence: US)
  Receive Date: 20131227
  Receipt Date: 20141003
  Transmission Date: 20150529
  Serious: Yes (Hospitalization)
  Sender: FDA-Public Use
  Company Number: US-BAYER-2013-155924

PATIENT
  Age: 28 Year
  Sex: Female
  Weight: 51 kg

DRUGS (3)
  1. MIRENA [Suspect]
     Active Substance: LEVONORGESTREL
     Indication: CONTRACEPTION
     Dosage: 20 MCG/24HR, CONT
     Route: 015
     Dates: start: 20110113, end: 20110201
  2. PRENATAL VITAMINS [Concomitant]
     Active Substance: VITAMINS
     Route: 048
  3. MIRENA [Suspect]
     Active Substance: LEVONORGESTREL
     Indication: CONTRACEPTION
     Dosage: 20 MCG/24HR, CONT
     Route: 015
     Dates: start: 200712, end: 201001

REACTIONS (6)
  - Device issue [None]
  - Emotional distress [None]
  - Device dislocation [None]
  - Uterine perforation [None]
  - Abdominal pain lower [None]
  - Injury [None]

NARRATIVE: CASE EVENT DATE: 201101
